FAERS Safety Report 8210158-4 (Version None)
Quarter: 2012Q1

REPORT INFORMATION
  Report Type: 
  Country: None (occurrence: None)
  Receive Date: 20120314
  Receipt Date: 20110323
  Transmission Date: 20120608
  Serious: No
  Sender: FDA-Public Use
  Company Number: US-ASTRAZENECA-2011SE16764

PATIENT
  Age: 60 Year
  Sex: Female
  Weight: 50.8 kg

DRUGS (3)
  1. SYNTHROID [Concomitant]
  2. METOPROLOL SUCCINATE [Suspect]
     Indication: HEART VALVE OPERATION
     Route: 048
     Dates: start: 20090101
  3. BONIVA [Concomitant]

REACTIONS (1)
  - COELIAC DISEASE [None]
